FAERS Safety Report 11848034 (Version 2)
Quarter: 2015Q4

REPORT INFORMATION
  Report Type: Report from Study
  Country: MX (occurrence: MX)
  Receive Date: 20151217
  Receipt Date: 20151222
  Transmission Date: 20160305
  Serious: Yes (Death, Hospitalization, Other)
  Sender: FDA-Public Use
  Company Number: PHHY2015MX165285

PATIENT
  Age: 79 Year
  Sex: Female

DRUGS (3)
  1. TEMERIT [Concomitant]
     Active Substance: NEBIVOLOL
     Indication: TACHYCARDIA
     Dosage: 1 OT, QD (AT NIGHT) (STARTED FROM 4 YEARS AGO)
     Route: 065
  2. INSULIN [Concomitant]
     Active Substance: INSULIN NOS
     Indication: DIABETES MELLITUS
     Dosage: 55 OT, QD (35 IN THE MORNING AND 20 AT NIGHT), (FROM 12 YEARS AGO)
     Route: 065
  3. EXFORGE HCT [Suspect]
     Active Substance: AMLODIPINE BESYLATE\HYDROCHLOROTHIAZIDE\VALSARTAN
     Indication: HYPERTENSION
     Dosage: 1 DF,VALSARTAN 320 MG AND AMLODIPINE 10 MG AND HYDROCHOLOROTHIAZIDE 25 MG, QD
     Route: 065
     Dates: end: 20151123

REACTIONS (3)
  - Thyroid disorder [Unknown]
  - Brain neoplasm [Fatal]
  - Taeniasis [Unknown]

NARRATIVE: CASE EVENT DATE: 20151123
